FAERS Safety Report 4397078-0 (Version None)
Quarter: 2004Q3

REPORT INFORMATION
  Report Type: 
  Country: None (occurrence: None)
  Receive Date: 20040714
  Receipt Date: 20040622
  Transmission Date: 20050211
  Serious: Yes (Other)
  Sender: FDA-Public Use
  Company Number: PHBS2004JP08384

PATIENT
  Age: 70 Year
  Sex: Female

DRUGS (5)
  1. NEORAL [Suspect]
     Indication: INTERSTITIAL LUNG DISEASE
     Dosage: 200 MG/D
     Route: 048
     Dates: start: 20040604, end: 20040606
  2. NEORAL [Suspect]
     Dosage: 175 MG/D
     Route: 048
     Dates: start: 20040607, end: 20040618
  3. NEORAL [Suspect]
     Route: 048
     Dates: start: 20040101, end: 20040101
  4. PREDONINE [Suspect]
     Indication: INTERSTITIAL LUNG DISEASE
     Dosage: 60 MG/D
     Route: 042
     Dates: start: 20040604
  5. SULFAMETHOXAZOLE + TRIMETHOPRIM [Concomitant]
     Dates: start: 20040604

REACTIONS (8)
  - ALANINE AMINOTRANSFERASE INCREASED [None]
  - ASPARTATE AMINOTRANSFERASE INCREASED [None]
  - BLOOD MAGNESIUM DECREASED [None]
  - ENCEPHALOPATHY [None]
  - HEPATIC FUNCTION ABNORMAL [None]
  - MANIA [None]
  - PERSECUTORY DELUSION [None]
  - PSYCHIATRIC SYMPTOM [None]
